FAERS Safety Report 13229234 (Version 3)
Quarter: 2018Q2

REPORT INFORMATION
  Report Type: Spontaneous
  Country: BE (occurrence: BE)
  Receive Date: 20170214
  Receipt Date: 20180413
  Transmission Date: 20180711
  Serious: Yes (Hospitalization)
  Sender: FDA-Public Use
  Company Number: BE-ORION CORPORATION ORION PHARMA-ENTC2017-0048

PATIENT
  Age: 75 Year
  Sex: Male

DRUGS (2)
  1. CORBILTA [Suspect]
     Active Substance: CARBIDOPA\ENTACAPONE\LEVODOPA
     Dosage: STRENGTH: 150 MG
     Route: 048
  2. CORBILTA [Suspect]
     Active Substance: CARBIDOPA\ENTACAPONE\LEVODOPA
     Dosage: STRENGTH: 100 MG
     Route: 048

REACTIONS (3)
  - Motor dysfunction [Recovering/Resolving]
  - Product substitution issue [Unknown]
  - Product quality issue [Unknown]
